FAERS Safety Report 5624984-9 (Version None)
Quarter: 2008Q1

REPORT INFORMATION
  Report Type: 
  Country: None (occurrence: None)
  Receive Date: 20080208
  Receipt Date: 20080125
  Transmission Date: 20080703
  Serious: Yes (Other)
  Sender: FDA-Public Use
  Company Number: VNL_00930_2008

PATIENT
  Sex: Male

DRUGS (1)
  1. APO-GO (APO-GO AMPOULES 10 MG/ML - APOMORPHINE HYDROCHLORIDE) (NOT SPE [Suspect]
     Indication: PARKINSONISM
     Dosage: (AT LEAST 16 HOURS PER DAY (TIME VARIABLE) FOR 6 YEARS SUBCUTANEOUS)
     Route: 058

REACTIONS (7)
  - DISEASE PROGRESSION [None]
  - DRUG EFFECT DECREASED [None]
  - HALLUCINATION [None]
  - INFUSION RELATED REACTION [None]
  - NODULE [None]
  - PARANOIA [None]
  - SKIN NODULE [None]
